FAERS Safety Report 9158333 (Version 1)
Quarter: 2013Q1

REPORT INFORMATION
  Report Type: Spontaneous
  Country: DE (occurrence: DE)
  Receive Date: 20130312
  Receipt Date: 20130312
  Transmission Date: 20140127
  Serious: Yes (Other)
  Sender: FDA-Public Use
  Company Number: DE-B.I. PHARMACEUTICALS,INC./RIDGEFIELD-2013-DE-00622DE

PATIENT
  Sex: 0

DRUGS (4)
  1. SIFROL [Suspect]
     Indication: PARKINSON^S DISEASE
  2. DULOXETIN [Concomitant]
  3. ALPRAZOLAM [Concomitant]
  4. PANTOPRAZOL [Concomitant]

REACTIONS (1)
  - Blood chromogranin A increased [Not Recovered/Not Resolved]
